FAERS Safety Report 19196018 (Version 1)
Quarter: 2021Q2

REPORT INFORMATION
  Report Type: Spontaneous
  Country: TH (occurrence: TH)
  Receive Date: 20210429
  Receipt Date: 20210429
  Transmission Date: 20210717
  Serious: Yes (Death)
  Sender: FDA-Public Use
  Company Number: TH-JUBILANT PHARMA LTD-2021TH000374

PATIENT

DRUGS (1)
  1. SODIUM IODIDE I?131. [Suspect]
     Active Substance: SODIUM IODIDE I-131
     Indication: THYROID CANCER
     Dosage: CUMULATIVE 944.01?236.9MCI

REACTIONS (1)
  - Pulmonary sepsis [Fatal]
